FAERS Safety Report 5496374-3 (Version None)
Quarter: 2007Q4

REPORT INFORMATION
  Report Type: 
  Country: None (occurrence: None)
  Receive Date: 20071025
  Receipt Date: 20070424
  Transmission Date: 20080405
  Serious: No
  Sender: FDA-Public Use
  Company Number: A0645564A

PATIENT
  Age: 48 Year
  Sex: Female

DRUGS (13)
  1. ADVAIR DISKUS 100/50 [Suspect]
     Indication: BRONCHITIS
     Dosage: 1PUFF TWICE PER DAY
     Route: 055
     Dates: start: 20070207
  2. NORVIR [Suspect]
  3. PROZAC [Concomitant]
  4. TRUVADA [Concomitant]
  5. REYATAZ [Concomitant]
  6. WELLBUTRIN XL [Concomitant]
  7. DIDANOSINE [Concomitant]
  8. ALPRAZOLAM [Concomitant]
  9. ALLEGRA [Concomitant]
  10. MUCINEX [Concomitant]
  11. HORMONE PATCH [Concomitant]
  12. VALTREX [Concomitant]
  13. NEXIUM [Concomitant]

REACTIONS (6)
  - DRUG INEFFECTIVE [None]
  - DRUG INTERACTION [None]
  - MOUTH ULCERATION [None]
  - RASH [None]
  - TONGUE DISORDER [None]
  - TREATMENT NONCOMPLIANCE [None]
